FAERS Safety Report 21929008 (Version 1)
Quarter: 2023Q1

REPORT INFORMATION
  Report Type: Report from Study
  Country: US (occurrence: US)
  Receive Date: 20230131
  Receipt Date: 20230131
  Transmission Date: 20230418
  Serious: Yes (Hospitalization)
  Sender: FDA-Public Use
  Company Number: US-GBT-019668

PATIENT
  Age: 44 Year
  Sex: Male

DRUGS (9)
  1. OXBRYTA [Suspect]
     Active Substance: VOXELOTOR
     Indication: Haemolysis
     Dates: start: 20220201
  2. deferasirox (Jadenu) [Concomitant]
     Indication: Sickle cell disease
     Route: 048
     Dates: start: 20220125
  3. folic acid (FOLVITE) [Concomitant]
     Indication: Sickle cell disease
     Route: 048
     Dates: start: 20111011
  4. DOLOPHINE [Concomitant]
     Active Substance: METHADONE HYDROCHLORIDE
     Indication: Sickle cell disease
     Route: 048
     Dates: start: 20110621
  5. DOLOPHINE [Concomitant]
     Active Substance: METHADONE HYDROCHLORIDE
     Indication: Sickle cell disease
     Route: 048
     Dates: start: 20150520
  6. Morphine (MSIR) [Concomitant]
     Indication: Sickle cell disease
     Dosage: Q6H PRN PAIN
     Route: 048
     Dates: start: 20170727
  7. NEURONTIN [Concomitant]
     Active Substance: GABAPENTIN
     Indication: Sickle cell disease
     Route: 048
     Dates: start: 20160628
  8. glutamine (endari) [Concomitant]
     Indication: Sickle cell disease
     Route: 048
     Dates: start: 20191218
  9. VITAMIN D3 [Concomitant]
     Active Substance: CHOLECALCIFEROL
     Indication: Sickle cell disease
     Dosage: DOSAGE: 50000 U
     Route: 048
     Dates: start: 20150625

REACTIONS (1)
  - Sickle cell anaemia with crisis [Recovered/Resolved]

NARRATIVE: CASE EVENT DATE: 20220930
